FAERS Safety Report 8582067 (Version 3)
Quarter: 2013Q2

REPORT INFORMATION
  Report Type: Spontaneous
  Country: US (occurrence: US)
  Receive Date: 20120528
  Receipt Date: 20130501
  Transmission Date: 20140414
  Serious: Yes (Other)
  Sender: FDA-Public Use
  Company Number: US-BAYER-2012-049831

PATIENT
  Age: 82 Year
  Sex: Female
  Weight: 58.5 kg

DRUGS (1)
  1. ALEVE CAPLET/TABLET,MIDOL EXTENDED RELIEF CAPLET [Suspect]
     Indication: ARTHRITIS
     Dosage: 2 TABLETS EVERY MORNING, 1 TABLET IN THE EVENING IF NEEDED
     Route: 048
     Dates: start: 201201

REACTIONS (2)
  - Amnesia [Recovered/Resolved]
  - Incorrect drug administration duration [None]
